FAERS Safety Report 6763937-4 (Version None)
Quarter: 2010Q2

REPORT INFORMATION
  Report Type: 
  Country: None (occurrence: None)
  Receive Date: 20100608
  Receipt Date: 20100206
  Transmission Date: 20101027
  Serious: Yes (Hospitalization)
  Sender: FDA-Public Use
  Company Number: 2010SP001546

PATIENT
  Age: 6 Year
  Sex: Female

DRUGS (3)
  1. XOPENEX [Suspect]
     Indication: RESPIRATORY DISTRESS
     Dosage: 1.25 MG/3ML 1X INHALATION; 1.25/3ML INHALATION; 1.25 MG/3ML PRN INHALATION
     Route: 055
     Dates: start: 20100206, end: 20100206
  2. XOPENEX [Suspect]
     Indication: RESPIRATORY DISTRESS
     Dosage: 1.25 MG/3ML 1X INHALATION; 1.25/3ML INHALATION; 1.25 MG/3ML PRN INHALATION
     Route: 055
     Dates: start: 20100201, end: 20100207
  3. XOPENEX [Suspect]
     Indication: RESPIRATORY DISTRESS
     Dosage: 1.25 MG/3ML 1X INHALATION; 1.25/3ML INHALATION; 1.25 MG/3ML PRN INHALATION
     Route: 055
     Dates: start: 20100208

REACTIONS (4)
  - DRUG INEFFECTIVE [None]
  - HEART RATE INCREASED [None]
  - NERVOUSNESS [None]
  - OXYGEN SATURATION DECREASED [None]
